FAERS Safety Report 6286667-4 (Version None)
Quarter: 2009Q3

REPORT INFORMATION
  Report Type: 
  Country: None (occurrence: None)
  Receive Date: 20090728
  Receipt Date: 20090721
  Transmission Date: 20100115
  Serious: Yes (Other)
  Sender: FDA-Public Use
  Company Number: PHHY2009DE30087

PATIENT
  Sex: Female

DRUGS (4)
  1. RASILEZ [Suspect]
     Indication: HYPERTENSION
     Dosage: 150 MG, BID
  2. RASILEZ [Suspect]
     Dosage: 300 MG, BID
  3. SIMVASTATIN [Concomitant]
  4. RAMIPRIL [Concomitant]

REACTIONS (5)
  - ABDOMINAL PAIN UPPER [None]
  - HOT FLUSH [None]
  - INCORRECT DOSE ADMINISTERED [None]
  - NAUSEA [None]
  - TACHYCARDIA [None]
